FAERS Safety Report 10250544 (Version 1)
Quarter: 2014Q2

REPORT INFORMATION
  Report Type: Spontaneous
  Country: US (occurrence: US)
  Receive Date: 20140620
  Receipt Date: 20140620
  Transmission Date: 20141212
  Serious: Yes (Hospitalization)
  Sender: FDA-Public Use
  Company Number: US-GLAXOSMITHKLINE-A1077085A

PATIENT
  Age: 52 Year
  Sex: Female

DRUGS (2)
  1. ADVAIR HFA [Suspect]
     Indication: CHRONIC OBSTRUCTIVE PULMONARY DISEASE
     Dosage: 1PUFF TWICE PER DAY
     Route: 055
  2. VENTOLIN [Suspect]
     Indication: CHRONIC OBSTRUCTIVE PULMONARY DISEASE
     Dosage: 2PUFF SIX TIMES PER DAY
     Route: 055

REACTIONS (5)
  - Myocardial infarction [Unknown]
  - Stent placement [Unknown]
  - Arterial occlusive disease [Unknown]
  - Chest pain [Unknown]
  - Treatment noncompliance [Unknown]
